FAERS Safety Report 7028192-9 (Version None)
Quarter: 2010Q3

REPORT INFORMATION
  Report Type: 
  Country: None (occurrence: None)
  Receive Date: 20100930
  Receipt Date: 20100917
  Transmission Date: 20110219
  Serious: Yes (Other)
  Sender: FDA-Public Use
  Company Number: 2010-3208

PATIENT
  Age: 13 Year
  Sex: Male

DRUGS (1)
  1. INCRELEX [Suspect]
     Indication: PRODUCT USED FOR UNKNOWN INDICATION
     Dates: start: 20100101

REACTIONS (2)
  - EYE SWELLING [None]
  - GLAUCOMA [None]
